FAERS Safety Report 9718868 (Version 1)
Quarter: 2013Q4

REPORT INFORMATION
  Report Type: Spontaneous
  Country: US (occurrence: US)
  Receive Date: 20131127
  Receipt Date: 20131127
  Transmission Date: 20140711
  Serious: No
  Sender: FDA-Public Use
  Company Number: US-BAXTER-2013BAX046546

PATIENT
  Sex: Male

DRUGS (1)
  1. TISSEEL VH S/D [Suspect]
     Indication: INGUINAL HERNIA REPAIR
     Route: 065

REACTIONS (1)
  - Seroma [Unknown]
